FAERS Safety Report 15239671 (Version 2)
Quarter: 2018Q3

REPORT INFORMATION
  Report Type: Spontaneous
  Country: CA (occurrence: CA)
  Receive Date: 20180803
  Receipt Date: 20180806
  Transmission Date: 20181010
  Serious: Yes (Other)
  Sender: FDA-Public Use
  Company Number: CA-TEVA-2018-CA-935790

PATIENT
  Age: 69 Year
  Sex: Female

DRUGS (2)
  1. RISEDRONIC ACID [Suspect]
     Active Substance: RISEDRONIC ACID
     Indication: OSTEOPOROSIS
     Route: 065
  2. ALENDRONIC ACID [Suspect]
     Active Substance: ALENDRONIC ACID
     Indication: OSTEOPOROSIS
     Route: 065

REACTIONS (6)
  - Pelvic pain [Unknown]
  - Groin pain [Unknown]
  - Pubis fracture [Unknown]
  - Fractured sacrum [Unknown]
  - Pelvic fracture [Unknown]
  - Intentional product misuse [Unknown]
